FAERS Safety Report 6123799-5 (Version None)
Quarter: 2009Q1

REPORT INFORMATION
  Report Type: 
  Country: None (occurrence: None)
  Receive Date: 20090317
  Receipt Date: 20090227
  Transmission Date: 20090719
  Serious: Yes (Other)
  Sender: FDA-Public Use
  Company Number: 8043772

PATIENT
  Age: 27 Year
  Sex: Female
  Weight: 68 kg

DRUGS (5)
  1. KEPPRA [Suspect]
     Indication: EPILEPSY
     Dosage: 1500 MG /D PO
     Route: 048
     Dates: start: 20071001
  2. LEVOTHYROXINE SODIUM [Concomitant]
  3. TIMOFEROL [Concomitant]
  4. SPECIAFOLDINE [Concomitant]
  5. ORAL CONTRACEPTION [Concomitant]

REACTIONS (2)
  - DRUG EXPOSURE DURING PREGNANCY [None]
  - PREGNANCY ON ORAL CONTRACEPTIVE [None]
